FAERS Safety Report 9421475 (Version 1)
Quarter: 2013Q3

REPORT INFORMATION
  Report Type: Spontaneous
  Country: US (occurrence: US)
  Receive Date: 20130726
  Receipt Date: 20130726
  Transmission Date: 20140515
  Serious: No
  Sender: FDA-Public Use
  Company Number: US-009507513-1307USA007938

PATIENT
  Age: 42 Year
  Sex: Female

DRUGS (1)
  1. FOLLISTIM AQ CARTRIDGE [Suspect]
     Indication: INFERTILITY
     Dosage: 600 IU ONCE DAILY FOR SEVEN DAYS
     Route: 058
     Dates: start: 20130707

REACTIONS (2)
  - Pain [Not Recovered/Not Resolved]
  - Product quality issue [Unknown]
